FAERS Safety Report 9460880 (Version 1)
Quarter: 2013Q3

REPORT INFORMATION
  Report Type: Spontaneous
  Country: US (occurrence: US)
  Receive Date: 20130816
  Receipt Date: 20130816
  Transmission Date: 20140515
  Serious: Yes (Hospitalization, Other)
  Sender: FDA-Public Use
  Company Number: US-PAR PHARMACEUTICAL, INC-2013SCPR006085

PATIENT
  Sex: 0

DRUGS (7)
  1. RISPERIDONE [Suspect]
     Indication: AGGRESSION
     Dosage: 0.5 MG, REPEATED AFTER 18 HOURS
     Route: 048
  2. QUETIAPINE [Suspect]
     Indication: AGGRESSION
     Dosage: 800 MG, / DAY
     Route: 048
  3. QUETIAPINE [Suspect]
     Dosage: 600 MG, / DAY
     Route: 048
  4. TRAZODONE [Concomitant]
     Indication: AGGRESSION
     Dosage: UNK, HS
     Route: 065
  5. MELATONIN [Concomitant]
     Indication: AGGRESSION
     Dosage: UNK UNK, IN THE EVENING
     Route: 065
  6. SIMVASTATIN [Concomitant]
     Indication: HYPERLIPIDAEMIA
     Dosage: UNK, UNKNOWN
     Route: 065
  7. TEMAZEPAM [Concomitant]
     Indication: AGGRESSION
     Dosage: UNK UNK, HS AS NEEDED
     Route: 065

REACTIONS (2)
  - Pleurothotonus [Recovered/Resolved]
  - Akathisia [Recovered/Resolved]
